FAERS Safety Report 14629434 (Version 1)
Quarter: 2018Q1

REPORT INFORMATION
  Report Type: Spontaneous
  Country: US (occurrence: US)
  Receive Date: 20180312
  Receipt Date: 20180312
  Transmission Date: 20180509
  Serious: Yes (Life-Threatening, Hospitalization)
  Sender: FDA-Public Use
  Company Number: None

PATIENT
  Age: 41 Year
  Sex: Female
  Weight: 60.75 kg

DRUGS (4)
  1. NORETHINDRONE 5MG [Suspect]
     Active Substance: NORETHINDRONE
     Indication: HAEMORRHAGE
     Dosage: ?          QUANTITY:1 TABLET(S);?
     Route: 048
     Dates: start: 20180127, end: 20180308
  2. MULTIVITAMIN [Concomitant]
     Active Substance: VITAMINS
  3. BILBERRY EXTRACT [Concomitant]
  4. NORETHINDRONE 5MG [Suspect]
     Active Substance: NORETHINDRONE
     Indication: UTERINE LEIOMYOMA
     Dosage: ?          QUANTITY:1 TABLET(S);?
     Route: 048
     Dates: start: 20180127, end: 20180308

REACTIONS (2)
  - Deep vein thrombosis [None]
  - Pulmonary embolism [None]

NARRATIVE: CASE EVENT DATE: 20180309
